FAERS Safety Report 6278735-8 (Version None)
Quarter: 2009Q3

REPORT INFORMATION
  Report Type: 
  Country: None (occurrence: None)
  Receive Date: 20090721
  Receipt Date: 20090710
  Transmission Date: 20100115
  Serious: Yes (Hospitalization)
  Sender: FDA-Public Use
  Company Number: 2008AL010503

PATIENT
  Age: 73 Year
  Sex: Female
  Weight: 103.8737 kg

DRUGS (28)
  1. DIGOXIN [Suspect]
     Indication: CARDIAC FAILURE CONGESTIVE
     Dosage: 0.25 MG, DAILY, PO
     Route: 048
     Dates: start: 19970101, end: 20090509
  2. AMIODARONE [Concomitant]
  3. LIPITOR [Concomitant]
  4. COREG [Concomitant]
  5. AVELOX [Concomitant]
  6. IMDUR [Concomitant]
  7. NIACIN [Concomitant]
  8. AVODART [Concomitant]
  9. LASIX [Concomitant]
  10. SPIRONOLACTONE [Concomitant]
  11. FOLIC ACID [Concomitant]
  12. LISINOPRIL [Concomitant]
  13. TOPROL-XL [Concomitant]
  14. PLAVIX [Concomitant]
  15. ASPIRIN [Concomitant]
  16. COUMADIN [Concomitant]
  17. NIACIN [Concomitant]
  18. DOXAZOSIN MESYLATE [Concomitant]
  19. KLOR-CON [Concomitant]
  20. LORAZEPAM [Concomitant]
  21. ACETAMINOPHEN AND HYDROCODONE BITARTRATE [Concomitant]
  22. LOVENOX [Concomitant]
  23. FERREX [Concomitant]
  24. SONATA [Concomitant]
  25. AMBIEN [Concomitant]
  26. CLOPIDOGREL [Concomitant]
  27. ISOSORBIDE DINITRATE [Concomitant]
  28. DOXYCYCL HYC [Concomitant]

REACTIONS (29)
  - ACTIVITIES OF DAILY LIVING IMPAIRED [None]
  - ANHEDONIA [None]
  - ANXIETY [None]
  - ASTHENIA [None]
  - ATRIAL FIBRILLATION [None]
  - BREATH SOUNDS ABNORMAL [None]
  - CARDIAC FAILURE CONGESTIVE [None]
  - CARDIOMYOPATHY [None]
  - CHEST PAIN [None]
  - COUGH [None]
  - DIZZINESS [None]
  - DYSLIPIDAEMIA [None]
  - DYSPNOEA [None]
  - ECONOMIC PROBLEM [None]
  - EMOTIONAL DISTRESS [None]
  - FAMILY STRESS [None]
  - HEART RATE IRREGULAR [None]
  - HYPERTENSION [None]
  - MULTIPLE INJURIES [None]
  - NAUSEA [None]
  - OROPHARYNGEAL PAIN [None]
  - PAIN [None]
  - PARTNER STRESS [None]
  - RENAL FAILURE ACUTE [None]
  - RHINORRHOEA [None]
  - SOCIAL PROBLEM [None]
  - THERAPEUTIC AGENT TOXICITY [None]
  - VASODILATATION [None]
  - VISION BLURRED [None]
